FAERS Safety Report 4320202-2 (Version None)
Quarter: 2004Q1

REPORT INFORMATION
  Report Type: 
  Country: None (occurrence: None)
  Receive Date: 20040317
  Receipt Date: 20040304
  Transmission Date: 20041129
  Serious: Yes (Death)
  Sender: FDA-Public Use
  Company Number: 2004-BP-01436NB(1)

PATIENT
  Age: 80 Year
  Sex: Female

DRUGS (2)
  1. MOBIC [Suspect]
     Indication: BACK PAIN
     Dosage: 10 MG (NR), PO
     Route: 048
     Dates: start: 20040113
  2. ELCITONIN (ELCATONIN) (AM) [Suspect]
     Indication: OSTEOPOROSIS
     Dosage: 20 U (NR), IM
     Dates: start: 20040126

REACTIONS (2)
  - COMPRESSION FRACTURE [None]
  - SUDDEN DEATH [None]
